FAERS Safety Report 4380668-9 (Version None)
Quarter: 2004Q2

REPORT INFORMATION
  Report Type: 
  Country: None (occurrence: None)
  Receive Date: 20040616
  Receipt Date: 20040604
  Transmission Date: 20050107
  Serious: Yes (Death)
  Sender: FDA-Public Use
  Company Number: 2004217584NO

PATIENT
  Age: 65 Year
  Sex: Male

DRUGS (9)
  1. FRAGMIN [Suspect]
     Indication: DEEP VEIN THROMBOSIS
     Dosage: 10000 U, BID, SUBCUTANEOUS
     Route: 058
     Dates: start: 20040314, end: 20040317
  2. WARFARIN SODIUM [Suspect]
     Indication: DEEP VEIN THROMBOSIS
     Dosage: ORAL
     Route: 048
     Dates: start: 20040314, end: 20040317
  3. SEROXAT ^SK+F^ (PAROXETINE HYDROCHLORIDE) [Concomitant]
  4. FUNGIZONE [Concomitant]
  5. ZOPICLONE [Concomitant]
  6. PARACET [Concomitant]
  7. KETORAX [Concomitant]
  8. FORTECORTIN [Concomitant]
  9. SOBRIL [Concomitant]

REACTIONS (2)
  - CEREBRAL HAEMORRHAGE [None]
  - HEMIPARESIS [None]
